FAERS Safety Report 6743231-8 (Version None)
Quarter: 2010Q2

REPORT INFORMATION
  Report Type: 
  Country: None (occurrence: None)
  Receive Date: 20100527
  Receipt Date: 20100519
  Transmission Date: 20101027
  Serious: Yes (Death)
  Sender: FDA-Public Use
  Company Number: FR-WYE-G06148810

PATIENT
  Sex: Female

DRUGS (1)
  1. TORISEL [Suspect]
     Indication: RENAL NEOPLASM
     Route: 042
     Dates: start: 20100125, end: 20100208

REACTIONS (2)
  - ACUTE RESPIRATORY DISTRESS SYNDROME [None]
  - TACHYCARDIA [None]
